FAERS Safety Report 11474039 (Version 1)
Quarter: 2015Q3

REPORT INFORMATION
  Report Type: Spontaneous
  Country: US (occurrence: None)
  Receive Date: 20150902
  Receipt Date: 20150902
  Transmission Date: 20151125
  Serious: Yes (Hospitalization)
  Sender: FDA-Public Use
  Company Number: A-NJ2015-115497

PATIENT
  Age: 38 Year
  Sex: Male

DRUGS (3)
  1. FLOLAN [Concomitant]
     Active Substance: EPOPROSTENOL SODIUM
  2. VELETRI [Suspect]
     Active Substance: EPOPROSTENOL
     Indication: PULMONARY HYPERTENSION
     Dosage: 11 NG/KG, PER MIN, INTRAVENOUS
     Route: 042
     Dates: start: 20150114
  3. XARELTO [Concomitant]
     Active Substance: RIVAROXABAN

REACTIONS (7)
  - Fluid overload [None]
  - Fluid retention [None]
  - Dyspnoea [None]
  - Oedema peripheral [None]
  - Pain [None]
  - Loss of consciousness [None]
  - Bradycardia [None]
